FAERS Safety Report 4563898-2 (Version None)
Quarter: 2005Q1

REPORT INFORMATION
  Report Type: 
  Country: None (occurrence: None)
  Receive Date: 20050112
  Receipt Date: 20050112
  Transmission Date: 20050727
  Serious: No
  Sender: FDA-Public Use
  Company Number: None

PATIENT
  Sex: Female

DRUGS (1)
  1. COUMADIN [Suspect]
     Indication: ATRIAL FIBRILLATION
     Dosage: 5 MG ONE 6 TSP/WK 1/2 ONE DAY /WK

REACTIONS (1)
  - INTERNATIONAL NORMALISED RATIO INCREASED [None]
